FAERS Safety Report 15795496 (Version 1)
Quarter: 2019Q1

REPORT INFORMATION
  Report Type: Report from Study
  Country: US (occurrence: US)
  Receive Date: 20190107
  Receipt Date: 20190107
  Transmission Date: 20190417
  Serious: Yes (Life-Threatening, Hospitalization)
  Sender: FDA-Public Use
  Company Number: US-SA-2018SA393886

PATIENT
  Age: 64 Year
  Sex: Female

DRUGS (2)
  1. INSULIN GLARGINE [Suspect]
     Active Substance: INSULIN GLARGINE
     Indication: TYPE 2 DIABETES MELLITUS
     Dosage: 41 U, QD (NIGHTLY)
     Route: 058
  2. INSULIN GLARGINE [Suspect]
     Active Substance: INSULIN GLARGINE
     Indication: DIABETIC NEUROPATHY

REACTIONS (5)
  - Loss of personal independence in daily activities [Unknown]
  - Coronary artery disease [Recovering/Resolving]
  - Product dose omission [Unknown]
  - Inability to afford medication [Unknown]
  - Unemployment [Unknown]

NARRATIVE: CASE EVENT DATE: 20180801
